FAERS Safety Report 5167088-4 (Version None)
Quarter: 2006Q4

REPORT INFORMATION
  Report Type: 
  Country: None (occurrence: None)
  Receive Date: 20061207
  Receipt Date: 20061128
  Transmission Date: 20070319
  Serious: Yes (Hospitalization)
  Sender: FDA-Public Use
  Company Number: US-GLAXOSMITHKLINE-A0629040A

PATIENT
  Age: 60 Year
  Sex: Male
  Weight: 76 kg

DRUGS (7)
  1. CYCLOPHOSPHAMIDE [Suspect]
     Route: 042
     Dates: start: 20061113, end: 20061113
  2. ADRIAMYCIN PFS [Suspect]
     Route: 042
     Dates: start: 20061113, end: 20061113
  3. ONDANSETRON [Suspect]
     Dosage: 8MG TWICE PER DAY
     Route: 048
     Dates: start: 20061113, end: 20061115
  4. DEXAMETHASONE [Suspect]
     Dosage: 8MG TWICE PER DAY
     Route: 048
     Dates: start: 20061114, end: 20061115
  5. COUMADIN [Concomitant]
     Indication: CEREBROVASCULAR ACCIDENT
     Dosage: 4MG AT NIGHT
  6. PRILOSEC [Concomitant]
  7. ADVIL [Concomitant]
     Indication: HEADACHE
     Dates: start: 20030111

REACTIONS (4)
  - COUGH [None]
  - FEBRILE NEUTROPENIA [None]
  - MOUTH ULCERATION [None]
  - PYREXIA [None]
